FAERS Safety Report 4360563-1 (Version None)
Quarter: 2004Q2

REPORT INFORMATION
  Report Type: 
  Country: None (occurrence: None)
  Receive Date: 20040519
  Receipt Date: 20040505
  Transmission Date: 20050107
  Serious: Yes (Death)
  Sender: FDA-Public Use
  Company Number: FR-ROCHE-366826

PATIENT
  Age: 23 Year
  Sex: Male

DRUGS (3)
  1. PEG-INTERFERON ALFA 2A (RO 25-8310) [Suspect]
     Route: 058
     Dates: start: 20031221, end: 20040208
  2. GLEEVEC [Suspect]
     Route: 048
     Dates: end: 20040210
  3. SOLUPRED [Suspect]
     Route: 048
     Dates: start: 20040202, end: 20040210

REACTIONS (8)
  - ANAEMIA [None]
  - FATIGUE [None]
  - LUNG DISORDER [None]
  - PNEUMOCYSTIS CARINII PNEUMONIA [None]
  - PNEUMOMEDIASTINUM [None]
  - PNEUMOTHORAX [None]
  - PULMONARY FIBROSIS [None]
  - THROMBOCYTOPENIA [None]
